FAERS Safety Report 4345225-9 (Version None)
Quarter: 2004Q2

REPORT INFORMATION
  Report Type: 
  Country: None (occurrence: None)
  Receive Date: 20040423
  Receipt Date: 20040330
  Transmission Date: 20050107
  Serious: Yes (Hospitalization)
  Sender: FDA-Public Use
  Company Number: JP-ROCHE-363475

PATIENT
  Age: 2 Year
  Sex: Male
  Weight: 12 kg

DRUGS (5)
  1. TAMIFLU [Suspect]
     Indication: INFLUENZA
     Route: 048
     Dates: start: 20040326, end: 20040328
  2. BIOFERMIN [Concomitant]
     Indication: LOOSE STOOLS
     Route: 048
     Dates: start: 20040326, end: 20040327
  3. PRIMPERAN INJ [Concomitant]
     Route: 048
     Dates: start: 20040326, end: 20040327
  4. ACETAMINOPHEN [Concomitant]
     Route: 054
  5. DIASTASE [Concomitant]
     Indication: LOOSE STOOLS
     Route: 048
     Dates: start: 20040326, end: 20040327

REACTIONS (4)
  - ASTHENIA [None]
  - DIARRHOEA [None]
  - ILEUS [None]
  - INTESTINAL OBSTRUCTION [None]
